FAERS Safety Report 20710382 (Version 1)
Quarter: 2022Q2

REPORT INFORMATION
  Report Type: Spontaneous
  Country: US (occurrence: US)
  Receive Date: 20220414
  Receipt Date: 20220414
  Transmission Date: 20220721
  Serious: Yes (Other)
  Sender: FDA-Public Use
  Company Number: US-SUN PHARMACEUTICAL INDUSTRIES LTD-2022R1-332686

PATIENT
  Age: 63 Year
  Sex: Male

DRUGS (2)
  1. SOTALOL [Suspect]
     Active Substance: SOTALOL
     Indication: Atrial fibrillation
     Dosage: 80 MILLIGRAM, BID
     Route: 065
  2. SOTALOL [Suspect]
     Active Substance: SOTALOL
     Dosage: 120 MILLIGRAM, BID
     Route: 065

REACTIONS (1)
  - Abdominal distension [Recovered/Resolved]
